FAERS Safety Report 18649857 (Version 1)
Quarter: 2020Q4

REPORT INFORMATION
  Report Type: Spontaneous
  Country: US (occurrence: US)
  Receive Date: 20201222
  Receipt Date: 20201222
  Transmission Date: 20210114
  Serious: Yes (Other)
  Sender: FDA-Public Use
  Company Number: US-PFIZER INC-2020501195

PATIENT
  Age: 61 Year
  Sex: Female

DRUGS (1)
  1. XELJANZ XR [Suspect]
     Active Substance: TOFACITINIB CITRATE
     Dosage: 11 MG
     Dates: start: 20201123

REACTIONS (9)
  - Abdominal discomfort [Unknown]
  - Nausea [Unknown]
  - Diarrhoea [Unknown]
  - Urinary tract infection [Unknown]
  - Epistaxis [Unknown]
  - Discomfort [Recovered/Resolved]
  - Nasal discomfort [Unknown]
  - Headache [Unknown]
  - Nasal dryness [Unknown]

NARRATIVE: CASE EVENT DATE: 2020
